FAERS Safety Report 24257434 (Version 1)
Quarter: 2024Q3

REPORT INFORMATION
  Report Type: Report from Study
  Country: CA (occurrence: CA)
  Receive Date: 20240828
  Receipt Date: 20240828
  Transmission Date: 20241017
  Serious: Yes (Hospitalization, Other)
  Sender: GILEAD
  Company Number: CA-GILEAD-2024-0685284

PATIENT
  Sex: Female

DRUGS (1)
  1. AZTREONAM LYSINE [Suspect]
     Active Substance: AZTREONAM LYSINE
     Indication: Hepatitis B
     Dosage: 5 MG, TID ( CONTINUOUSLY WITHOUT DRUG FREE INTERVAL)
     Route: 055

REACTIONS (2)
  - Pneumonia [Unknown]
  - Off label use [Unknown]
